FAERS Safety Report 6694903-5 (Version None)
Quarter: 2010Q2

REPORT INFORMATION
  Report Type: 
  Country: None (occurrence: None)
  Receive Date: 20100423
  Receipt Date: 20100419
  Transmission Date: 20101027
  Serious: Yes (Life-Threatening, Hospitalization, Other)
  Sender: FDA-Public Use
  Company Number: JP-JNJFOC-20100202623

PATIENT
  Sex: Female

DRUGS (3)
  1. DUROTEP MT [Suspect]
     Indication: OSTEOARTHRITIS
     Route: 062
  2. DUROTEP MT [Suspect]
     Indication: PAIN
     Route: 062
  3. DUROTEP MT [Suspect]
     Route: 062

REACTIONS (8)
  - ACUTE RESPIRATORY DISTRESS SYNDROME [None]
  - ASPIRATION [None]
  - EXPOSURE TO EXTREME TEMPERATURE [None]
  - LOSS OF CONSCIOUSNESS [None]
  - NEAR DROWNING [None]
  - OFF LABEL USE [None]
  - PNEUMONIA [None]
  - RESPIRATORY FAILURE [None]
